FAERS Safety Report 17925702 (Version 3)
Quarter: 2020Q3

REPORT INFORMATION
  Report Type: Spontaneous
  Country: JP (occurrence: JP)
  Receive Date: 20200622
  Receipt Date: 20200827
  Transmission Date: 20201103
  Serious: Yes (Hospitalization)
  Sender: FDA-Public Use
  Company Number: JP-CELGENEUS-JPN-20200605279

PATIENT
  Age: 73 Year
  Sex: Female

DRUGS (8)
  1. ABRAXANE [Suspect]
     Active Substance: PACLITAXEL
     Route: 041
     Dates: start: 2020
  2. ENDOXAN [Concomitant]
     Active Substance: CYCLOPHOSPHAMIDE
     Indication: BREAST CANCER METASTATIC
     Route: 065
     Dates: start: 20191002, end: 20200108
  3. HYSRON?H [Concomitant]
     Active Substance: MEDROXYPROGESTERONE
     Indication: BREAST CANCER METASTATIC
     Route: 065
     Dates: start: 20191002, end: 20200108
  4. ABRAXANE [Suspect]
     Active Substance: PACLITAXEL
     Indication: BREAST CANCER
     Route: 041
     Dates: start: 20200115
  5. FURTULON [Concomitant]
     Active Substance: DOXIFLURIDINE
     Indication: BREAST CANCER METASTATIC
     Route: 065
     Dates: start: 20191002, end: 20200108
  6. ASTOMIN [Concomitant]
     Active Substance: DIMEMORFAN
     Indication: COUGH
     Dosage: MILLIGRAM/DAY
     Route: 048
     Dates: start: 20190314, end: 20200624
  7. LYRICA [Concomitant]
     Active Substance: PREGABALIN
     Indication: HYPOAESTHESIA
     Dosage: MILLIGRAM/DAY
     Route: 048
     Dates: start: 20191225, end: 20200624
  8. TECENTRIQ [Suspect]
     Active Substance: ATEZOLIZUMAB
     Indication: BREAST CANCER METASTATIC
     Route: 041
     Dates: start: 20200115

REACTIONS (1)
  - Seizure [Recovered/Resolved]

NARRATIVE: CASE EVENT DATE: 20200614
